FAERS Safety Report 12290560 (Version 5)
Quarter: 2016Q2

REPORT INFORMATION
  Report Type: Spontaneous
  Country: US (occurrence: US)
  Receive Date: 20160421
  Receipt Date: 20160621
  Transmission Date: 20160815
  Serious: Yes (Hospitalization, Other)
  Sender: FDA-Public Use
  Company Number: US-ACTELION-A-NJ2016-134882

PATIENT
  Age: 68 Year
  Sex: Male

DRUGS (2)
  1. OPSUMIT [Suspect]
     Active Substance: MACITENTAN
     Indication: PULMONARY ARTERIAL HYPERTENSION
     Dosage: 10 MG, QD
     Route: 048
     Dates: start: 20150618
  2. VENTAVIS [Suspect]
     Active Substance: ILOPROST
     Indication: PULMONARY ARTERIAL HYPERTENSION
     Dosage: 5 MCG, 6-9X DAILY
     Route: 055
     Dates: start: 20140417

REACTIONS (5)
  - Cough [Recovered/Resolved]
  - Colectomy [Recovered/Resolved]
  - Colon cancer stage II [Recovering/Resolving]
  - Weight decreased [Unknown]
  - Pruritus [Unknown]

NARRATIVE: CASE EVENT DATE: 20160517
